FAERS Safety Report 15405776 (Version 1)
Quarter: 2018Q3

REPORT INFORMATION
  Report Type: Spontaneous
  Country: US (occurrence: US)
  Receive Date: 20180912
  Receipt Date: 20180912
  Transmission Date: 20181010
  Serious: No
  Sender: FDA-Public Use
  Company Number: None

PATIENT
  Age: 63 Year
  Sex: Female

DRUGS (1)
  1. HUMIRA [Suspect]
     Active Substance: ADALIMUMAB
     Indication: PSORIASIS
     Route: 058
     Dates: start: 20170707

REACTIONS (4)
  - Dry eye [None]
  - Thirst [None]
  - Dehydration [None]
  - Diabetes mellitus [None]

NARRATIVE: CASE EVENT DATE: 201808
